FAERS Safety Report 8839485 (Version 1)
Quarter: 2012Q4

REPORT INFORMATION
  Report Type: Spontaneous
  Country: US (occurrence: None)
  Receive Date: 20121012
  Receipt Date: 20121012
  Transmission Date: 20130627
  Serious: Yes (Other)
  Sender: FDA-Public Use
  Company Number: None

PATIENT
  Age: 40 Year
  Sex: Female
  Weight: 67.59 kg

DRUGS (2)
  1. EFFEXOR [Suspect]
     Indication: DEPRESSION
     Dosage: 75 mg   1  po
     Route: 048
     Dates: start: 20120501, end: 20121001
  2. EFFEXOR [Suspect]
     Indication: ANXIETY
     Dosage: 75 mg   1  po
     Route: 048
     Dates: start: 20120501, end: 20121001

REACTIONS (3)
  - Dizziness [None]
  - Weight increased [None]
  - Fatigue [None]
